FAERS Safety Report 6439875-3 (Version None)
Quarter: 2009Q4

REPORT INFORMATION
  Report Type: 
  Country: None (occurrence: None)
  Receive Date: 20091112
  Receipt Date: 20091112
  Transmission Date: 20100525
  Serious: Yes (Other)
  Sender: FDA-Public Use
  Company Number: None

PATIENT
  Age: 77 Year
  Sex: Female
  Weight: 51.7101 kg

DRUGS (1)
  1. PHENERGAN HCL [Suspect]
     Indication: NAUSEA
     Dosage: ONCE IV
     Route: 042
     Dates: start: 20091005

REACTIONS (2)
  - APHASIA [None]
  - DYSKINESIA [None]
